FAERS Safety Report 5369978-6 (Version None)
Quarter: 2007Q2

REPORT INFORMATION
  Report Type: 
  Country: None (occurrence: None)
  Receive Date: 20070626
  Receipt Date: 20070618
  Transmission Date: 20071010
  Serious: No
  Sender: FDA-Public Use
  Company Number: PHNU2007DE01084

PATIENT
  Sex: Male

DRUGS (4)
  1. AREDIA [Suspect]
     Indication: PLASMACYTOMA
     Dosage: 1 DF, QMO
     Route: 042
     Dates: start: 20050101, end: 20070201
  2. ZOMETA [Suspect]
     Indication: MULTIPLE MYELOMA
     Dosage: 4 MG, QMO
     Route: 042
     Dates: start: 20030101, end: 20050101
  3. ANTIHYPERTENSIVE DRUGS [Concomitant]
     Route: 065
  4. LIPID MODIFYING AGENTS [Concomitant]
     Route: 065

REACTIONS (4)
  - DENTAL PROSTHESIS USER [None]
  - LOOSE TOOTH [None]
  - SEQUESTRECTOMY [None]
  - TOOTH EXTRACTION [None]
